FAERS Safety Report 14689986 (Version 2)
Quarter: 2018Q2

REPORT INFORMATION
  Report Type: Spontaneous
  Country: TR (occurrence: TR)
  Receive Date: 20180328
  Receipt Date: 20180504
  Transmission Date: 20180711
  Serious: Yes (Life-Threatening, Hospitalization)
  Sender: FDA-Public Use
  Company Number: TR-JNJFOC-20180331601

PATIENT
  Age: 59 Year
  Sex: Male
  Weight: 63.5 kg

DRUGS (1)
  1. STELARA [Suspect]
     Active Substance: USTEKINUMAB
     Indication: PSORIASIS
     Route: 058
     Dates: start: 20180220, end: 20180220

REACTIONS (8)
  - Tension [Unknown]
  - Dizziness [Unknown]
  - Blood chloride increased [Unknown]
  - Haemoglobin increased [Unknown]
  - Mean cell volume increased [Unknown]
  - White blood cell count increased [Unknown]
  - Low density lipoprotein increased [Unknown]
  - Cardiac arrest [Recovered/Resolved]

NARRATIVE: CASE EVENT DATE: 2018
